FAERS Safety Report 9270849 (Version 1)
Quarter: 2013Q2

REPORT INFORMATION
  Report Type: Spontaneous
  Country: PT (occurrence: PT)
  Receive Date: 20130503
  Receipt Date: 20130503
  Transmission Date: 20140414
  Serious: Yes (Death)
  Sender: FDA-Public Use
  Company Number: PT-ASTRAZENECA-2013SE29812

PATIENT
  Age: 32 Year
  Sex: Male

DRUGS (9)
  1. QUETIAPINE [Suspect]
     Indication: BIPOLAR DISORDER
     Route: 048
  2. PAROXETINE [Suspect]
     Indication: ANTIDEPRESSANT THERAPY
  3. BROMAZEPAM [Suspect]
     Indication: ANXIOLYTIC THERAPY
  4. HALOPERIDOL [Suspect]
     Indication: BIPOLAR DISORDER
  5. OLANZAPINE [Suspect]
     Indication: BIPOLAR DISORDER
  6. FLUOXETINE [Suspect]
     Indication: ANTIDEPRESSANT THERAPY
  7. LORAZEPAM [Suspect]
     Indication: ANXIOLYTIC THERAPY
  8. RISPERIDONE [Suspect]
  9. OTHER BENZODIAZEPINES [Suspect]

REACTIONS (2)
  - Completed suicide [Fatal]
  - Toxicity to various agents [Fatal]
